FAERS Safety Report 24541212 (Version 3)
Quarter: 2024Q4

REPORT INFORMATION
  Report Type: Spontaneous
  Country: TR (occurrence: TR)
  Receive Date: 20241023
  Receipt Date: 20241123
  Transmission Date: 20250115
  Serious: Yes (Life-Threatening, Hospitalization)
  Sender: ABBVIE
  Company Number: TR-ABBOTT-2024A-1389982

PATIENT
  Age: 47 Year
  Sex: Female
  Weight: 80 kg

DRUGS (14)
  1. FLUVOXAMINE MALEATE [Suspect]
     Active Substance: FLUVOXAMINE MALEATE
     Indication: Schizophrenia
     Dosage: 100 MG FILM COATED TABLET
     Route: 048
     Dates: end: 20240926
  2. FLUVOXAMINE MALEATE [Suspect]
     Active Substance: FLUVOXAMINE MALEATE
     Indication: Schizophrenia
     Route: 048
  3. RISPERDAL CONSTA [Suspect]
     Active Substance: RISPERIDONE
     Indication: Schizophrenia
     Dosage: 37.5 MG EXTENDED RELEASE SUSPENSION FOR IM INJECTION
     Route: 065
  4. RISPERDAL CONSTA [Suspect]
     Active Substance: RISPERIDONE
     Indication: Schizophrenia
     Dosage: 37.5 MG EXTENDED RELEASE SUSPENSION FOR IM INJECTION
     Route: 065
     Dates: end: 20240926
  5. ABILIFY [Suspect]
     Active Substance: ARIPIPRAZOLE
     Indication: Schizophrenia
     Route: 065
  6. ABILIFY [Suspect]
     Active Substance: ARIPIPRAZOLE
     Indication: Schizophrenia
     Route: 065
     Dates: end: 20240926
  7. PALIPERIDONE [Suspect]
     Active Substance: PALIPERIDONE
     Indication: Schizophrenia
     Dosage: INVEGA 3 MG EXTENDED RELEASE TABLET
     Route: 065
  8. PALIPERIDONE [Suspect]
     Active Substance: PALIPERIDONE
     Indication: Schizophrenia
     Dosage: INVEGA 3 MG EXTENDED RELEASE TABLET
     Route: 065
     Dates: end: 20240926
  9. PALIPERIDONE [Suspect]
     Active Substance: PALIPERIDONE
     Indication: Schizophrenia
     Dosage: INVEGA 9 MG EXTENDED RELEASE TABLET
     Route: 065
  10. PALIPERIDONE [Suspect]
     Active Substance: PALIPERIDONE
     Indication: Schizophrenia
     Dosage: INVEGA 9 MG EXTENDED RELEASE TABLET
     Route: 065
     Dates: end: 20240926
  11. VALPROATE SODIUM [Suspect]
     Active Substance: VALPROATE SODIUM
     Indication: Epilepsy
     Dosage: DEPAKINE CHRONO BT 500 MG LONG-ACTING FILM-COATED TABLET (VALPROIC ACI
     Route: 065
     Dates: end: 20240926
  12. VALPROATE SODIUM [Suspect]
     Active Substance: VALPROATE SODIUM
     Indication: Epilepsy
     Route: 065
  13. AKINETON [Suspect]
     Active Substance: BIPERIDEN HYDROCHLORIDE
     Indication: Schizophrenia
     Dosage: 2 MG TABLET
     Route: 065
     Dates: end: 20240926
  14. AKINETON [Suspect]
     Active Substance: BIPERIDEN HYDROCHLORIDE
     Indication: Schizophrenia
     Dosage: 2 MG TABLET
     Route: 065

REACTIONS (5)
  - Delayed recovery from anaesthesia [Recovered/Resolved]
  - Delayed recovery from anaesthesia [Recovered/Resolved]
  - Drug interaction [Recovered/Resolved]
  - Urinary incontinence [Recovered/Resolved]
  - Lagophthalmos [Recovered/Resolved]

NARRATIVE: CASE EVENT DATE: 20240927
